FAERS Safety Report 7523143-2 (Version None)
Quarter: 2011Q2

REPORT INFORMATION
  Report Type: 
  Country: None (occurrence: None)
  Receive Date: 20110601
  Receipt Date: 20110601
  Transmission Date: 20111010
  Serious: No
  Sender: FDA-Public Use
  Company Number: None

PATIENT
  Sex: Female

DRUGS (1)
  1. FENTANYL [Suspect]
     Indication: PAIN
     Dosage: 1 PATCH FOR 3 DAYS TOP
     Route: 061
     Dates: start: 20110518, end: 20110521

REACTIONS (10)
  - SOMNOLENCE [None]
  - CHILLS [None]
  - THINKING ABNORMAL [None]
  - NAUSEA [None]
  - RETCHING [None]
  - AGITATION [None]
  - CONFUSIONAL STATE [None]
  - DRY MOUTH [None]
  - INCOHERENT [None]
  - ASTHENIA [None]
